FAERS Safety Report 6337573-8 (Version None)
Quarter: 2009Q3

REPORT INFORMATION
  Report Type: 
  Country: None (occurrence: None)
  Receive Date: 20090902
  Receipt Date: 20090821
  Transmission Date: 20100115
  Serious: Yes (Other)
  Sender: FDA-Public Use
  Company Number: BR-ELI_LILLY_AND_COMPANY-BR200908004678

PATIENT
  Age: 54 Year
  Sex: Female

DRUGS (4)
  1. FLUOXETINE HYDROCHLORIDE [Suspect]
     Indication: OBSESSIVE-COMPULSIVE DISORDER
     Dosage: UNK, UNKNOWN
     Route: 065
  2. FLUOXETINE HYDROCHLORIDE [Suspect]
     Dosage: 60 MG, DAILY (1/D)
     Route: 065
  3. DIVALPROEX SODIUM [Concomitant]
     Indication: AFFECTIVE DISORDER
     Dosage: 1.5 G, DAILY (1/D)
     Route: 065
  4. LORAZEPAM [Concomitant]
     Indication: ANXIETY
     Dosage: 2 MG, AS NEEDED
     Route: 065

REACTIONS (1)
  - EXTRAPYRAMIDAL DISORDER [None]
